FAERS Safety Report 6549228-5 (Version None)
Quarter: 2010Q1

REPORT INFORMATION
  Report Type: 
  Country: None (occurrence: None)
  Receive Date: 20100125
  Receipt Date: 20100114
  Transmission Date: 20100710
  Serious: Yes (Other)
  Sender: FDA-Public Use
  Company Number: CA-ASTRAZENECA-2010SE01957

PATIENT
  Age: 65 Year
  Sex: Female

DRUGS (3)
  1. SEROQUEL [Suspect]
     Indication: INSOMNIA
     Dosage: 100 MG EVERY HOUR OF SLEEP
     Route: 048
     Dates: start: 20020101
  2. ASPIRIN [Concomitant]
  3. SYNTHROID [Concomitant]

REACTIONS (3)
  - CATARACT [None]
  - EYE HAEMORRHAGE [None]
  - THYROID FUNCTION TEST ABNORMAL [None]
